FAERS Safety Report 5848744-9 (Version None)
Quarter: 2008Q3

REPORT INFORMATION
  Report Type: 
  Country: None (occurrence: None)
  Receive Date: 20080818
  Receipt Date: 20080811
  Transmission Date: 20090109
  Serious: No
  Sender: FDA-Public Use
  Company Number: US-BOEHRINGER INGELHEIM GMBH, GERMANY-2008-BP-12676BP

PATIENT
  Sex: Male

DRUGS (3)
  1. MICARDIS HCT [Suspect]
     Indication: HYPERTENSION
     Route: 048
     Dates: start: 20080730
  2. ASPIRIN [Concomitant]
     Indication: PROPHYLAXIS
  3. MULTI-VITAMIN [Concomitant]

REACTIONS (1)
  - BLOOD PRESSURE INCREASED [None]
